FAERS Safety Report 9798891 (Version 2)
Quarter: 2014Q1

REPORT INFORMATION
  Report Type: Spontaneous
  Country: US (occurrence: US)
  Receive Date: 20140106
  Receipt Date: 20140106
  Transmission Date: 20141002
  Serious: No
  Sender: FDA-Public Use
  Company Number: US-GILEAD-2010-0032267

PATIENT
  Age: 83 Year
  Sex: Female
  Weight: 58.97 kg

DRUGS (19)
  1. LETAIRIS [Suspect]
     Indication: PULMONARY ARTERIAL HYPERTENSION
     Route: 048
     Dates: start: 20090122
  2. NIFEDIPINE XL [Concomitant]
  3. TRICOR [Concomitant]
  4. LASIX [Concomitant]
  5. OMEPRAZOLE [Concomitant]
  6. METAMUCIL [Concomitant]
  7. HYDROCODONE [Concomitant]
  8. NEURONTIN [Concomitant]
  9. LIDODERM [Concomitant]
  10. TYLENOL [Concomitant]
  11. ALLOPURINOL [Concomitant]
  12. LORAZEPAM [Concomitant]
  13. AMBIEN [Concomitant]
  14. PREMARIN [Concomitant]
  15. LEVOTHYROXINE [Concomitant]
  16. TRAVATAN [Concomitant]
  17. CENTRUM [Concomitant]
  18. CALTRATE WITH VITAMIN D [Concomitant]
  19. POTASSIUM CHLORIDE [Concomitant]

REACTIONS (2)
  - Local swelling [Unknown]
  - Oedema [Unknown]
